FAERS Safety Report 23516872 (Version 1)
Quarter: 2024Q1

REPORT INFORMATION
  Report Type: Spontaneous
  Country: IN (occurrence: IN)
  Receive Date: 20240213
  Receipt Date: 20240213
  Transmission Date: 20240410
  Serious: Yes (Other)
  Sender: FDA-Public Use
  Company Number: IN-ALKEM LABORATORIES LIMITED-IN-ALKEM-2023-14498

PATIENT
  Age: 28 Year
  Sex: Male

DRUGS (7)
  1. LINEZOLID [Suspect]
     Active Substance: LINEZOLID
     Indication: Tuberculosis
     Dosage: 600 MILLIGRAM, OD (TABLET)
     Route: 048
  2. Becosule [Concomitant]
     Indication: Tuberculosis
     Dosage: UNK, OD
     Route: 065
  3. CLARITHROMYCIN [Concomitant]
     Active Substance: CLARITHROMYCIN
     Indication: Tuberculosis
     Dosage: 400 MILLIGRAM, OD
     Route: 065
  4. CYCLOSERINE [Concomitant]
     Active Substance: CYCLOSERINE
     Indication: Tuberculosis
     Dosage: 100 MILLIGRAM, OD
     Route: 065
  5. MOXIFLOXACIN [Concomitant]
     Active Substance: MOXIFLOXACIN
     Indication: Tuberculosis
     Dosage: 400 MILLIGRAM, OD
     Route: 065
  6. Neurobian forte [Concomitant]
     Indication: Product used for unknown indication
     Dosage: UNK
     Route: 065
  7. Para-aminosalicylic acid granules [Concomitant]
     Indication: Tuberculosis
     Dosage: 200 MILLIGRAM/KILOGRAM, BID (TABLET)
     Route: 065

REACTIONS (1)
  - Toxic optic neuropathy [Recovered/Resolved]
